FAERS Safety Report 12081855 (Version 7)
Quarter: 2016Q4

REPORT INFORMATION
  Report Type: Spontaneous
  Country: US (occurrence: US)
  Receive Date: 20160216
  Receipt Date: 20161020
  Transmission Date: 20170206
  Serious: Yes (Hospitalization)
  Sender: FDA-Public Use
  Company Number: US-ALLERGAN-1601285US

PATIENT
  Age: 50 Year
  Sex: Female

DRUGS (2)
  1. BOTOX COSMETIC [Suspect]
     Active Substance: ONABOTULINUMTOXINA
     Indication: PRODUCT USED FOR UNKNOWN INDICATION
     Dosage: UNK, SINGLE
     Route: 030
     Dates: start: 20160102, end: 20160102
  2. KYBELLA [Suspect]
     Active Substance: DEOXYCHOLIC ACID
     Indication: PRODUCT USED FOR UNKNOWN INDICATION
     Dosage: UNK UNK, SINGLE
     Route: 058
     Dates: start: 20160105, end: 20160105

REACTIONS (18)
  - Swelling [Unknown]
  - Cardiac disorder [Unknown]
  - Hypoaesthesia [Unknown]
  - Blindness unilateral [Unknown]
  - Disturbance in attention [Not Recovered/Not Resolved]
  - Optic neuropathy [Unknown]
  - Injection site bruising [Unknown]
  - Dyspnoea [Unknown]
  - Hypopnoea [Unknown]
  - Photophobia [Unknown]
  - Vision blurred [Unknown]
  - Eye pain [Unknown]
  - Fear [Unknown]
  - Amnesia [Not Recovered/Not Resolved]
  - Crying [Unknown]
  - Malaise [Unknown]
  - Dysarthria [Unknown]
  - Headache [Not Recovered/Not Resolved]

NARRATIVE: CASE EVENT DATE: 20160102
